FAERS Safety Report 5067043-9 (Version None)
Quarter: 2006Q3

REPORT INFORMATION
  Report Type: 
  Country: None (occurrence: None)
  Receive Date: 20060801
  Receipt Date: 20060721
  Transmission Date: 20061208
  Serious: Yes (Other)
  Sender: FDA-Public Use
  Company Number: MX-GILEAD-2006-0009905

PATIENT

DRUGS (2)
  1. HEPSERA [Suspect]
     Indication: HEPATITIS B
     Route: 048
  2. LAMIVUDINE [Suspect]
     Indication: HEPATITIS B

REACTIONS (1)
  - DRUG INEFFECTIVE [None]
